FAERS Safety Report 8883458 (Version 1)
Quarter: 2012Q4

REPORT INFORMATION
  Report Type: 
  Country: US (occurrence: US)
  Receive Date: 20121102
  Receipt Date: 20121102
  Transmission Date: 20130627
  Serious: No
  Sender: FDA-Public Use
  Company Number: US-ASTRAZENECA-2012SE05480

PATIENT
  Age: 70 Year
  Sex: Male
  Weight: 83 kg

DRUGS (9)
  1. CRESTOR [Suspect]
     Route: 048
  2. ALLOPURINOL [Concomitant]
  3. ZETIA [Concomitant]
  4. GLUCOPHAGE [Concomitant]
  5. LISINOPRIL [Concomitant]
  6. PLAVIX [Concomitant]
  7. FLOMAX [Concomitant]
  8. COQ10 [Concomitant]
  9. VITAMIN C [Concomitant]

REACTIONS (3)
  - Muscle atrophy [Unknown]
  - Muscle enzyme increased [Unknown]
  - Muscular weakness [Unknown]
